FAERS Safety Report 4324667-1 (Version None)
Quarter: 2004Q1

REPORT INFORMATION
  Report Type: 
  Country: None (occurrence: None)
  Receive Date: 20040325
  Receipt Date: 20040325
  Transmission Date: 20041129
  Serious: Yes (Life-Threatening)
  Sender: FDA-Public Use
  Company Number: None

PATIENT
  Age: 6 Year
  Sex: Male
  Weight: 21.7727 kg

DRUGS (2)
  1. ZOLOFT [Suspect]
     Indication: ASPERGER'S DISORDER
     Dosage: 1/2 TABLET
     Dates: start: 20030921, end: 20031107
  2. STRATTERA [Concomitant]

REACTIONS (1)
  - SUICIDAL IDEATION [None]
